FAERS Safety Report 14204653 (Version 1)
Quarter: 2017Q4

REPORT INFORMATION
  Report Type: Spontaneous
  Country: US (occurrence: None)
  Receive Date: 20171117
  Receipt Date: 20171117
  Transmission Date: 20180321
  Serious: Yes (Hospitalization)
  Sender: FDA-Public Use
  Company Number: None

PATIENT
  Age: 74 Year
  Sex: Female

DRUGS (9)
  1. PANNTROPPRAZOLE [Concomitant]
  2. HARVONI [Suspect]
     Active Substance: LEDIPASVIR\SOFOSBUVIR
     Indication: HEPATITIS C
     Dosage: 1 TABLET DAILY ORAL
     Route: 048
     Dates: start: 20170725
  3. FUROSEMIDE. [Concomitant]
     Active Substance: FUROSEMIDE
  4. ASPIRIN. [Concomitant]
     Active Substance: ASPIRIN
  5. LANTUS [Concomitant]
     Active Substance: INSULIN GLARGINE
  6. AMLODIPINE [Concomitant]
     Active Substance: AMLODIPINE BESYLATE
  7. LACTULOSE. [Concomitant]
     Active Substance: LACTULOSE
  8. HUMALOG [Concomitant]
     Active Substance: INSULIN LISPRO
  9. METOPROLOL TARTRATE. [Concomitant]
     Active Substance: METOPROLOL TARTRATE

REACTIONS (10)
  - Abdominal pain upper [None]
  - Depression [None]
  - Fatigue [None]
  - Diarrhoea [None]
  - Sleep disorder [None]
  - Hepatotoxicity [None]
  - Decreased appetite [None]
  - Mood altered [None]
  - Neuropathy peripheral [None]
  - Fall [None]
